FAERS Safety Report 5887970-X (Version None)
Quarter: 2008Q3

REPORT INFORMATION
  Report Type: 
  Country: None (occurrence: None)
  Receive Date: 20080918
  Receipt Date: 20080911
  Transmission Date: 20090109
  Serious: Yes (Other)
  Sender: FDA-Public Use
  Company Number: B0536994A

PATIENT
  Sex: Male

DRUGS (1)
  1. ADARTREL [Suspect]
     Indication: RESTLESS LEGS SYNDROME
     Route: 048

REACTIONS (2)
  - DRUG INEFFECTIVE [None]
  - RESPIRATORY FAILURE [None]
